FAERS Safety Report 23878224 (Version 1)
Quarter: 2024Q2

REPORT INFORMATION
  Report Type: Spontaneous
  Country: PL (occurrence: PL)
  Receive Date: 20240521
  Receipt Date: 20240521
  Transmission Date: 20240716
  Serious: Yes (Death, Life-Threatening, Hospitalization)
  Sender: FDA-Public Use
  Company Number: PL-MEDEXUS PHARMA, INC.-2024MED00211

PATIENT
  Age: 72 Year
  Sex: Male

DRUGS (1)
  1. METHOTREXATE [Suspect]
     Active Substance: METHOTREXATE
     Indication: Hypertension
     Dosage: 10 MG, 2X/DAY

REACTIONS (8)
  - Cardiac arrest [Fatal]
  - Medication error [Fatal]
  - Adverse drug reaction [Fatal]
  - Overdose [Fatal]
  - Bone marrow failure [Fatal]
  - Hepatic failure [Unknown]
  - Renal failure [Unknown]
  - Multiple organ dysfunction syndrome [Unknown]
